FAERS Safety Report 5606061-6 (Version None)
Quarter: 2008Q1

REPORT INFORMATION
  Report Type: 
  Country: None (occurrence: None)
  Receive Date: 20080123
  Receipt Date: 20080123
  Transmission Date: 20080703
  Serious: Yes (Life-Threatening)
  Sender: FDA-Public Use
  Company Number: None

PATIENT
  Age: 70 Year
  Sex: Male
  Weight: 95.2554 kg

DRUGS (1)
  1. MOBIC [Suspect]

REACTIONS (3)
  - HEART RATE ABNORMAL [None]
  - HEART RATE DECREASED [None]
  - HEART RATE IRREGULAR [None]
